FAERS Safety Report 8031286-2 (Version None)
Quarter: 2012Q1

REPORT INFORMATION
  Report Type: 
  Country: None (occurrence: None)
  Receive Date: 20120109
  Receipt Date: 20101021
  Transmission Date: 20120608
  Serious: Yes (Hospitalization)
  Sender: FDA-Public Use
  Company Number: US-GLAXOSMITHKLINE-A0889252A

PATIENT
  Age: 44 Year
  Sex: Male
  Weight: 272.7 kg

DRUGS (5)
  1. CALAN [Concomitant]
  2. AVANDIA [Suspect]
     Indication: DIABETES MELLITUS
     Dosage: 8MG PER DAY
     Route: 048
     Dates: start: 19990101, end: 20030101
  3. CLONIDINE [Concomitant]
  4. ZESTRIL [Concomitant]
  5. METFORMIN HCL [Concomitant]

REACTIONS (2)
  - RESPIRATORY FAILURE [None]
  - CARDIAC FAILURE CONGESTIVE [None]
